FAERS Safety Report 5168769-9 (Version None)
Quarter: 2006Q4

REPORT INFORMATION
  Report Type: 
  Country: None (occurrence: None)
  Receive Date: 20061211
  Receipt Date: 20061205
  Transmission Date: 20070319
  Serious: Yes (Other)
  Sender: FDA-Public Use
  Company Number: US-JNJFOC-20061005616

PATIENT
  Sex: Male
  Weight: 102.06 kg

DRUGS (4)
  1. EXTRA STRENGTH TYLENOL [Suspect]
     Route: 048
  2. EXTRA STRENGTH TYLENOL [Suspect]
     Indication: ARTHRITIS
     Route: 048
  3. COUMADIN [Concomitant]
     Indication: DRUG USE FOR UNKNOWN INDICATION
  4. HEART MEDICATIONS [Concomitant]
     Indication: CARDIAC DISORDER

REACTIONS (2)
  - CARDIAC FAILURE CONGESTIVE [None]
  - WRONG DRUG ADMINISTERED [None]
